FAERS Safety Report 8343469-2 (Version None)
Quarter: 2012Q2

REPORT INFORMATION
  Report Type: 
  Country: None (occurrence: None)
  Receive Date: 20120503
  Receipt Date: 20120503
  Transmission Date: 20120825
  Serious: No
  Sender: FDA-Public Use
  Company Number: None

PATIENT
  Sex: Male

DRUGS (10)
  1. WELLBUTRIN [Concomitant]
  2. CARVEDILOL [Concomitant]
  3. DIGOXIN [Concomitant]
  4. INLYTA [Suspect]
     Indication: RENAL CANCER
     Dosage: 5MG BID PO
     Route: 048
     Dates: start: 20120218, end: 20120331
  5. MULTIVITAMIN MENS [Concomitant]
  6. ALVESCO [Concomitant]
  7. ISOSORBIDE DINITRATE [Concomitant]
  8. POTASSIUM CHLORIDE [Concomitant]
  9. LASIX [Concomitant]
  10. MAGNESIUM CHLORIDE [Concomitant]

REACTIONS (4)
  - PAIN [None]
  - ORAL PAIN [None]
  - DYSPNOEA [None]
  - PALMAR-PLANTAR ERYTHRODYSAESTHESIA SYNDROME [None]
